FAERS Safety Report 7239510-0 (Version None)
Quarter: 2011Q1

REPORT INFORMATION
  Report Type: 
  Country: None (occurrence: None)
  Receive Date: 20110121
  Receipt Date: 20110112
  Transmission Date: 20110831
  Serious: Yes (Hospitalization, Other)
  Sender: FDA-Public Use
  Company Number: US-US-EMD SERONO, INC.-7007962

PATIENT
  Sex: Female

DRUGS (2)
  1. REBIF [Suspect]
     Indication: MULTIPLE SCLEROSIS
     Route: 058
     Dates: start: 20090608
  2. WELLBUTRIN [Suspect]

REACTIONS (8)
  - PNEUMONIA [None]
  - TYMPANIC MEMBRANE PERFORATION [None]
  - RENAL IMPAIRMENT [None]
  - ADVERSE DRUG REACTION [None]
  - INJECTION SITE HAEMATOMA [None]
  - SEDATION [None]
  - UNEVALUABLE EVENT [None]
  - INJECTION SITE ERYTHEMA [None]
